FAERS Safety Report 15598931 (Version 2)
Quarter: 2019Q3

REPORT INFORMATION
  Report Type: Report from Study
  Country: US (occurrence: US)
  Receive Date: 20181108
  Receipt Date: 20190826
  Transmission Date: 20191004
  Serious: No
  Sender: FDA-Public Use
  Company Number: US-TAKEDA-2018TUS031555

PATIENT
  Age: 67 Year
  Sex: Female
  Weight: 91.16 kg

DRUGS (16)
  1. FEBUXOSTAT. [Suspect]
     Active Substance: FEBUXOSTAT
     Dosage: UNK, QD
     Route: 048
     Dates: start: 20181027
  2. COLCRYS [Suspect]
     Active Substance: COLCHICINE
     Indication: BLOOD URIC ACID INCREASED
     Dosage: UNK, QD
     Route: 048
     Dates: start: 2016
  3. RELAFEN [Suspect]
     Active Substance: NABUMETONE
     Dosage: UNK, QD
     Route: 048
  4. MULTIVITAMIN                       /00097801/ [Concomitant]
     Active Substance: VITAMINS
     Dosage: UNK UNK, QD
     Route: 048
  5. FEBUXOSTAT. [Suspect]
     Active Substance: FEBUXOSTAT
     Dosage: UNK
     Route: 065
  6. FEBUXOSTAT. [Suspect]
     Active Substance: FEBUXOSTAT
     Dosage: UNK
     Route: 065
     Dates: start: 201812
  7. COLCRYS [Suspect]
     Active Substance: COLCHICINE
     Dosage: UNK
     Route: 048
  8. ALLOPURINOL. [Suspect]
     Active Substance: ALLOPURINOL
     Indication: BLOOD URIC ACID INCREASED
     Dosage: UNK, QD
     Route: 048
     Dates: start: 2016
  9. RELAFEN [Suspect]
     Active Substance: NABUMETONE
     Indication: PAIN
     Dosage: UNK, QD
     Route: 048
     Dates: start: 2016
  10. RANITIDINE. [Concomitant]
     Active Substance: RANITIDINE
     Indication: DYSPEPSIA
     Dosage: 150 MG, BID
     Route: 048
     Dates: start: 2016
  11. FEBUXOSTAT. [Suspect]
     Active Substance: FEBUXOSTAT
     Indication: BLOOD URIC ACID INCREASED
     Dosage: 40 MILLIGRAM, QD
     Route: 048
     Dates: start: 20181013, end: 20181026
  12. VITAMIN C [Concomitant]
     Active Substance: ASCORBIC ACID
     Dosage: 500 MG, QD
     Route: 048
     Dates: start: 2018
  13. MAGNESIUM [Concomitant]
     Active Substance: MAGNESIUM
     Dosage: 50 MG, BID
     Route: 048
     Dates: start: 2018
  14. FEBUXOSTAT. [Suspect]
     Active Substance: FEBUXOSTAT
     Indication: HYPERURICAEMIA
     Dosage: UNK
     Route: 048
     Dates: start: 20181005
  15. INDOMETHACIN                       /00003801/ [Suspect]
     Active Substance: INDOMETHACIN
     Indication: PAIN
     Dosage: UNK
     Route: 048
     Dates: start: 2016
  16. MELOXICAM. [Concomitant]
     Active Substance: MELOXICAM
     Indication: PAIN
     Dosage: UNK, QD
     Route: 048

REACTIONS (21)
  - Blood uric acid decreased [Recovering/Resolving]
  - Chest pain [Unknown]
  - Palpitations [Recovering/Resolving]
  - Abdominal discomfort [Recovered/Resolved]
  - Dyspepsia [Not Recovered/Not Resolved]
  - Insomnia [Recovering/Resolving]
  - Pain [Recovered/Resolved]
  - Dysphonia [Not Recovered/Not Resolved]
  - Rhinorrhoea [Not Recovered/Not Resolved]
  - Wrong technique in product usage process [Unknown]
  - Influenza like illness [Recovered/Resolved]
  - Arrhythmia [Recovering/Resolving]
  - Urinary tract infection [Recovered/Resolved]
  - Hepatic enzyme increased [Not Recovered/Not Resolved]
  - Aspartate aminotransferase increased [Not Recovered/Not Resolved]
  - Alanine aminotransferase increased [Not Recovered/Not Resolved]
  - Nasal congestion [Not Recovered/Not Resolved]
  - Sinus congestion [Not Recovered/Not Resolved]
  - Fatigue [Not Recovered/Not Resolved]
  - Back pain [Not Recovered/Not Resolved]
  - Diarrhoea [Not Recovered/Not Resolved]

NARRATIVE: CASE EVENT DATE: 201903
